FAERS Safety Report 12597049 (Version 1)
Quarter: 2016Q3

REPORT INFORMATION
  Report Type: Spontaneous
  Country: US (occurrence: None)
  Receive Date: 20160726
  Receipt Date: 20160726
  Transmission Date: 20161109
  Serious: No
  Sender: FDA-Public Use
  Company Number: None

PATIENT
  Age: 24 Year
  Sex: Female
  Weight: 81.65 kg

DRUGS (6)
  1. TOPAMAX [Concomitant]
     Active Substance: TOPIRAMATE
  2. NUVIGIL [Concomitant]
     Active Substance: ARMODAFINIL
  3. DIVALPROEX [Concomitant]
     Active Substance: DIVALPROEX SODIUM
  4. ESTRADIOL. [Concomitant]
     Active Substance: ESTRADIOL
  5. AMBIEN CR [Concomitant]
     Active Substance: ZOLPIDEM TARTRATE
  6. INDOMETHACIN. [Suspect]
     Active Substance: INDOMETHACIN
     Indication: MIGRAINE
     Dosage: 3 DAILY AS NEEDED
     Route: 048

REACTIONS (5)
  - Dizziness [None]
  - Vision blurred [None]
  - Fall [None]
  - Hallucination [None]
  - Dysstasia [None]

NARRATIVE: CASE EVENT DATE: 20150513
